FAERS Safety Report 10565746 (Version 2)
Quarter: 2014Q4

REPORT INFORMATION
  Report Type: Spontaneous
  Country: CN (occurrence: CN)
  Receive Date: 20141105
  Receipt Date: 20141120
  Transmission Date: 20150529
  Serious: Yes (Hospitalization)
  Sender: FDA-Public Use
  Company Number: CN-JNJFOC-20141019608

PATIENT
  Age: 75 Year
  Sex: Female

DRUGS (6)
  1. TRAMADOL HYDROCHLORIDE. [Suspect]
     Active Substance: TRAMADOL HYDROCHLORIDE
     Indication: OSTEOARTHRITIS
     Dosage: 1.5 MG PER DAY ON OD (ODD DAYS)
     Route: 048
  2. AMIODARONE [Concomitant]
     Active Substance: AMIODARONE
     Indication: PRODUCT USED FOR UNKNOWN INDICATION
     Route: 065
  3. FOSINOPRIL [Concomitant]
     Active Substance: FOSINOPRIL
     Indication: HYPERTENSION
     Route: 065
  4. WARFARIN [Interacting]
     Active Substance: WARFARIN
     Indication: ATRIAL FIBRILLATION
     Dosage: 1.5 MG PER DAY ON ODD DAYS AND 2.25 MG PER DAY ON EVEN DAYS
     Route: 048
  5. METOPROLOL [Concomitant]
     Active Substance: METOPROLOL
     Indication: HYPERTENSION
     Route: 065
  6. NOVOLIN [Concomitant]
     Active Substance: INSULIN HUMAN
     Indication: TYPE 2 DIABETES MELLITUS
     Route: 058

REACTIONS (6)
  - Haematuria [Recovering/Resolving]
  - Ecchymosis [Recovering/Resolving]
  - Urinary tract infection [Recovered/Resolved]
  - International normalised ratio increased [Recovered/Resolved]
  - Haemorrhage [Recovering/Resolving]
  - Drug interaction [Recovered/Resolved]
